FAERS Safety Report 7869866-7 (Version None)
Quarter: 2011Q4

REPORT INFORMATION
  Report Type: 
  Country: None (occurrence: None)
  Receive Date: 20111028
  Receipt Date: 20110110
  Transmission Date: 20120403
  Serious: No
  Sender: FDA-Public Use
  Company Number: US-AMGEN-USASP2011001590

PATIENT
  Age: 17 Year
  Sex: Female

DRUGS (1)
  1. ENBREL [Suspect]
     Indication: JUVENILE ARTHRITIS
     Dates: start: 20110102

REACTIONS (4)
  - DEVICE MALFUNCTION [None]
  - INJECTION SITE PAIN [None]
  - INJECTION SITE EROSION [None]
  - INJECTION SITE HAEMATOMA [None]
